FAERS Safety Report 12566702 (Version 8)
Quarter: 2021Q2

REPORT INFORMATION
  Report Type: Spontaneous
  Country: US (occurrence: US)
  Receive Date: 20160718
  Receipt Date: 20210413
  Transmission Date: 20210716
  Serious: Yes (Hospitalization, Other)
  Sender: FDA-Public Use
  Company Number: US-PFIZER INC-2016345759

PATIENT
  Age: 74 Year
  Sex: Female
  Weight: 54 kg

DRUGS (6)
  1. QUININE SULFATE. [Concomitant]
     Active Substance: QUININE SULFATE
     Indication: MUSCULAR DYSTROPHY
  2. SYNTHROID [Concomitant]
     Active Substance: LEVOTHYROXINE SODIUM
     Dosage: UNK
  3. ASPIRIN. [Concomitant]
     Active Substance: ASPIRIN
     Dosage: 81 MG, UNK
  4. PREMPRO [Suspect]
     Active Substance: ESTROGENS, CONJUGATED\MEDROXYPROGESTERONE ACETATE
     Indication: HORMONE REPLACEMENT THERAPY
     Dosage: 0.625, 2.5 MG, 1X/DAY (0.625MG/2.5MG 1 TABLET ONCE A DAY)
     Route: 048
     Dates: start: 1996
  5. PREMPRO [Suspect]
     Active Substance: ESTROGENS, CONJUGATED\MEDROXYPROGESTERONE ACETATE
     Indication: THYROID DISORDER
  6. JANUVIA [Concomitant]
     Active Substance: SITAGLIPTIN PHOSPHATE
     Indication: DIABETES MELLITUS

REACTIONS (9)
  - Loss of consciousness [Unknown]
  - Memory impairment [Unknown]
  - Vomiting [Unknown]
  - Myocardial infarction [Unknown]
  - Pain [Unknown]
  - Withdrawal syndrome [Unknown]
  - Circulatory collapse [Unknown]
  - Malaise [Unknown]
  - Hypertension [Unknown]

NARRATIVE: CASE EVENT DATE: 201511
